FAERS Safety Report 25879375 (Version 3)
Quarter: 2025Q4

REPORT INFORMATION
  Report Type: Spontaneous
  Country: JP (occurrence: JP)
  Receive Date: 20251003
  Receipt Date: 20251209
  Transmission Date: 20260117
  Serious: Yes (Other)
  Sender: MERCK SHARP & DOHME LLC
  Company Number: JP-009507513-2297324

PATIENT
  Age: 6 Decade
  Sex: Female

DRUGS (2)
  1. KEYTRUDA [Suspect]
     Active Substance: PEMBROLIZUMAB
     Indication: Microsatellite instability cancer
     Route: 041
  2. LENVIMA [Suspect]
     Active Substance: LENVATINIB
     Indication: Microsatellite instability cancer
     Route: 048

REACTIONS (8)
  - Immune-mediated hypothyroidism [Unknown]
  - Endometrial cancer recurrent [Unknown]
  - Glycosylated haemoglobin abnormal [Unknown]
  - Thyroiditis [Unknown]
  - Proteinuria [Unknown]
  - Nausea [Unknown]
  - Therapy partial responder [Unknown]
  - Cancer surgery [Unknown]
